FAERS Safety Report 4977421-1 (Version None)
Quarter: 2006Q2

REPORT INFORMATION
  Report Type: 
  Country: None (occurrence: None)
  Receive Date: 20060413
  Receipt Date: 20060331
  Transmission Date: 20061013
  Serious: Yes (Other)
  Sender: FDA-Public Use
  Company Number: 2006-BP-03642RO

PATIENT
  Age: 33 Year
  Sex: Female

DRUGS (2)
  1. METHOTREXATE [Suspect]
     Indication: ARTHRITIS
     Dosage: 15 MG PER WEEK (1 IN 1 WK), PO
     Route: 048
  2. FEMODENE (FEMODENE) [Suspect]
     Indication: CONTRACEPTION
     Dosage: GESTODENE 75 MCG + ETHINYLESTRADIOL 30 MCG) (SEE TEXT), PO
     Route: 048

REACTIONS (3)
  - ABDOMINAL PAIN LOWER [None]
  - MENORRHAGIA [None]
  - METRORRHAGIA [None]
